FAERS Safety Report 25797144 (Version 2)
Quarter: 2025Q4

REPORT INFORMATION
  Report Type: Spontaneous
  Country: JP (occurrence: JP)
  Receive Date: 20250912
  Receipt Date: 20251002
  Transmission Date: 20260118
  Serious: Yes (Death, Other)
  Sender: INCYTE
  Company Number: JP-INCYTE CORPORATION-2025IN009977

PATIENT
  Age: 48 Year

DRUGS (4)
  1. PEMAZYRE [Suspect]
     Active Substance: PEMIGATINIB
     Indication: Gastric cancer
     Dosage: UNK
     Route: 065
  2. ERDAFITINIB [Suspect]
     Active Substance: ERDAFITINIB
     Indication: Gastric cancer
     Dosage: UNK
     Route: 065
  3. FUTIBATINIB [Suspect]
     Active Substance: FUTIBATINIB
     Indication: Gastric cancer
     Dosage: UNK
     Route: 065
  4. IRINOTECAN [Concomitant]
     Active Substance: IRINOTECAN
     Indication: Gastric cancer
     Dosage: UNK
     Route: 065

REACTIONS (6)
  - Gastric cancer [Fatal]
  - Disease progression [Fatal]
  - Metastases to bone [Not Recovered/Not Resolved]
  - Disseminated intravascular coagulation [Not Recovered/Not Resolved]
  - Drug effective for unapproved indication [Unknown]
  - Off label use [Unknown]
